FAERS Safety Report 4684649-7 (Version None)
Quarter: 2005Q2

REPORT INFORMATION
  Report Type: 
  Country: None (occurrence: None)
  Receive Date: 20050531
  Receipt Date: 20050321
  Transmission Date: 20051028
  Serious: Yes (Hospitalization)
  Sender: FDA-Public Use
  Company Number: US_0502112388

PATIENT
  Age: 65 Year
  Sex: Female

DRUGS (4)
  1. ZYPREXA [Suspect]
     Indication: BIPOLAR DISORDER
     Dosage: 20 MG DAY
  2. ZYPREXA [Suspect]
     Indication: SCHIZOAFFECTIVE DISORDER
     Dosage: 20 MG DAY
  3. ZYPREXA [Suspect]
     Indication: AGITATION
  4. HALDOL (HALOPERIDOL DECANOATE) [Concomitant]

REACTIONS (6)
  - AGITATION [None]
  - ANAEMIA [None]
  - DEHYDRATION [None]
  - DELIRIUM [None]
  - EATING DISORDER SYMPTOM [None]
  - HALLUCINATION [None]
